FAERS Safety Report 8023797-0 (Version None)
Quarter: 2011Q4

REPORT INFORMATION
  Report Type: 
  Country: None (occurrence: None)
  Receive Date: 20111130
  Receipt Date: 20110118
  Transmission Date: 20120403
  Serious: Yes (Hospitalization)
  Sender: FDA-Public Use
  Company Number: 321805

PATIENT
  Age: 77 Year
  Sex: Female

DRUGS (2)
  1. NOVOLOG [Suspect]
     Indication: TYPE 2 DIABETES MELLITUS
     Dosage: SUBCUTANEOUS
  2. AMARYL [Suspect]
     Indication: TYPE 2 DIABETES MELLITUS
     Dosage: DAILY
     Dates: end: 20101001

REACTIONS (1)
  - HYPOGLYCAEMIA [None]
